FAERS Safety Report 7260710-8 (Version None)
Quarter: 2011Q1

REPORT INFORMATION
  Report Type: 
  Country: None (occurrence: None)
  Receive Date: 20110130
  Receipt Date: 20101221
  Transmission Date: 20110831
  Serious: No
  Sender: FDA-Public Use
  Company Number: US-ABBOTT-10P-163-0693089-00

PATIENT
  Age: 51 Year
  Sex: Female

DRUGS (9)
  1. LAVOXIL [Concomitant]
     Indication: THYROID DISORDER
  2. AMITRIPTYLINE HCL [Concomitant]
     Indication: CROHN'S DISEASE
  3. ACIPHEX [Concomitant]
     Indication: GASTROOESOPHAGEAL REFLUX DISEASE
  4. BETAPACE FOTALOL [Concomitant]
     Indication: PRODUCT USED FOR UNKNOWN INDICATION
  5. LEXAPRO [Concomitant]
     Indication: DEPRESSION
  6. NORCO [Concomitant]
     Indication: PAIN
  7. HUMIRA [Suspect]
     Indication: CROHN'S DISEASE
     Dates: start: 20100801
  8. HYOSCYAMINE [Concomitant]
     Indication: CROHN'S DISEASE
  9. MUSCLE RELAXER [Concomitant]
     Indication: ARTHRALGIA

REACTIONS (1)
  - DEVICE MALFUNCTION [None]
